FAERS Safety Report 4640721-9 (Version None)
Quarter: 2005Q2

REPORT INFORMATION
  Report Type: 
  Country: None (occurrence: None)
  Receive Date: 20050419
  Receipt Date: 20050406
  Transmission Date: 20051028
  Serious: Yes (Hospitalization, Other)
  Sender: FDA-Public Use
  Company Number: HQWYE429428MAR05

PATIENT
  Age: 55 Year
  Sex: Male

DRUGS (14)
  1. RAPAMUNE [Suspect]
     Indication: PROPHYLAXIS AGAINST TRANSPLANT REJECTION
     Dosage: 2 MG 1X PER 1 DAY ORAL
     Route: 048
     Dates: start: 20050214
  2. CYCLOSPORINE [Concomitant]
     Dosage: SEE IMAGE
  3. .......... [Concomitant]
  4. ................. [Concomitant]
  5. ....................... [Concomitant]
  6. PREDNISONE [Concomitant]
  7. .................... [Concomitant]
  8. NYASTATIN (NYSTATIN) [Concomitant]
  9. SULFAMETHOXAZOLE + TRIMETHOPRIM [Concomitant]
  10. PHENOXYMETHYL PENICILLIN                   (PHENOXYMETHYLPENICILLIN) [Concomitant]
  11. ATENOLOL [Concomitant]
  12. OMEPRAZOLE [Concomitant]
  13. TETRACYCLINE [Concomitant]
  14. ASA (ACETYSALICYLIC ACID) [Concomitant]

REACTIONS (3)
  - BLOOD CREATININE INCREASED [None]
  - COMPLICATIONS OF TRANSPLANTED KIDNEY [None]
  - PERINEPHRIC COLLECTION [None]
